FAERS Safety Report 9450125 (Version 1)
Quarter: 2013Q3

REPORT INFORMATION
  Report Type: Spontaneous
  Country: FR (occurrence: FR)
  Receive Date: 20130809
  Receipt Date: 20130809
  Transmission Date: 20140515
  Serious: Yes (Hospitalization)
  Sender: FDA-Public Use
  Company Number: FR-PFIZER INC-2013228357

PATIENT
  Age: 83 Year
  Sex: Female

DRUGS (11)
  1. LYRICA [Suspect]
     Dosage: 75 MG, 2X/DAY
     Dates: start: 20130627, end: 20130628
  2. ZALDIAR [Suspect]
     Dosage: 6DF (1DF 37.5 MG/325 MG) DAILY
     Route: 048
     Dates: start: 20130627, end: 20130628
  3. COUMADINE [Concomitant]
  4. NEBILOX [Concomitant]
     Dosage: 5 MG DAILY
  5. FUROSEMIDE [Concomitant]
     Dosage: 20 MG DAILY
     Dates: start: 20130627
  6. LERCAN [Concomitant]
     Dosage: 20 MG DAILY IN THE MORNING
  7. MOVICOL [Concomitant]
     Dosage: 1 TO 2 SACHETS DAILY
  8. LEVOTHYROX [Concomitant]
     Dosage: 25 UG DAILY
  9. TEMESTA [Concomitant]
     Dosage: 0.5 MG IN THE MORNING + 1 MG IN THE EVENING
  10. ZOLPIDEM [Concomitant]
     Dosage: 10 MG BEFORE GOING TO BED
  11. AERIUS [Concomitant]
     Dosage: 5 MG DAILY

REACTIONS (4)
  - Hyponatraemia [Recovered/Resolved]
  - Somnolence [Recovered/Resolved]
  - Rales [Recovered/Resolved]
  - Oedema peripheral [Unknown]
